FAERS Safety Report 19408343 (Version 2)
Quarter: 2022Q4

REPORT INFORMATION
  Report Type: Spontaneous
  Country: US (occurrence: US)
  Receive Date: 20210611
  Receipt Date: 20221118
  Transmission Date: 20230113
  Serious: Yes (Other)
  Sender: FDA-Public Use
  Company Number: US-SA-2021SA195668

PATIENT
  Age: 64 Year
  Sex: Female

DRUGS (1)
  1. RANITIDINE HYDROCHLORIDE [Suspect]
     Active Substance: RANITIDINE HYDROCHLORIDE
     Indication: Gastrooesophageal reflux disease
     Dosage: 150 MG, QD
     Dates: start: 201201, end: 201911

REACTIONS (1)
  - Uterine cancer [Unknown]

NARRATIVE: CASE EVENT DATE: 20200601
